FAERS Safety Report 8784582 (Version 1)
Quarter: 2012Q4

REPORT INFORMATION
  Report Type: Spontaneous
  Country: US (occurrence: None)
  Receive Date: 20120906
  Receipt Date: 20120906
  Transmission Date: 20130627
  Serious: No
  Sender: FDA-Public Use
  Company Number: None

PATIENT
  Sex: Female

DRUGS (1)
  1. DEPAKOTE ER [Suspect]

REACTIONS (10)
  - Product substitution issue [None]
  - Depression [None]
  - Suicidal ideation [None]
  - Anhedonia [None]
  - Decreased appetite [None]
  - Activities of daily living impaired [None]
  - Asthenia [None]
  - Insomnia [None]
  - Abdominal discomfort [None]
  - Economic problem [None]
